FAERS Safety Report 9155067 (Version 1)
Quarter: 2013Q1

REPORT INFORMATION
  Report Type: Spontaneous
  Country: BR (occurrence: BR)
  Receive Date: 20130311
  Receipt Date: 20130311
  Transmission Date: 20140127
  Serious: Yes (Other)
  Sender: FDA-Public Use
  Company Number: BR-PFIZER INC-2013076269

PATIENT
  Age: 58 Year
  Sex: Female

DRUGS (6)
  1. XALATAN [Suspect]
     Indication: GLAUCOMA
     Dosage: ONE DROP IN EACH EYE (3 UG), 1X/DAY
     Route: 047
     Dates: start: 2005, end: 20130206
  2. AAS [Concomitant]
     Dosage: UNK
     Dates: start: 2004
  3. HYDROCHLOROTHIAZIDE [Concomitant]
     Dosage: UNK
     Dates: start: 1993
  4. LOSARTAN [Concomitant]
     Dosage: UNK
     Dates: start: 2007
  5. GLUCOSAMINE SULFATE [Concomitant]
     Dosage: UNK
     Dates: start: 2009
  6. SUSTRATE [Concomitant]
     Dosage: UNK
     Dates: start: 2004

REACTIONS (3)
  - Cataract [Not Recovered/Not Resolved]
  - Arthritis [Not Recovered/Not Resolved]
  - Osteoarthritis [Not Recovered/Not Resolved]
